FAERS Safety Report 5569469-3 (Version None)
Quarter: 2007Q4

REPORT INFORMATION
  Report Type: 
  Country: None (occurrence: None)
  Receive Date: 20071220
  Receipt Date: 20071210
  Transmission Date: 20080405
  Serious: Yes (Hospitalization)
  Sender: FDA-Public Use
  Company Number: JP-SANOFI-SYNTHELABO-A01200713578

PATIENT
  Sex: Male
  Weight: 53 kg

DRUGS (3)
  1. AMOBAN [Concomitant]
     Indication: INSOMNIA
     Route: 048
     Dates: start: 20040302
  2. NORVASC [Concomitant]
     Indication: HYPERTENSION
     Route: 048
     Dates: start: 20040302
  3. PLAVIX [Suspect]
     Indication: TRANSIENT ISCHAEMIC ATTACK
     Route: 048
     Dates: start: 20071023, end: 20071121

REACTIONS (1)
  - DERMATITIS EXFOLIATIVE [None]
